FAERS Safety Report 4586463-X (Version None)
Quarter: 2005Q1

REPORT INFORMATION
  Report Type: 
  Country: None (occurrence: None)
  Receive Date: 20050214
  Receipt Date: 20050207
  Transmission Date: 20050727
  Serious: Yes (Death)
  Sender: FDA-Public Use
  Company Number: 163-20785-05020125

PATIENT
  Age: 78 Year
  Sex: Male

DRUGS (1)
  1. THALOMID [Suspect]
     Dosage: 200 MG, DAILY, ORAL
     Route: 048
     Dates: start: 20050117, end: 20050101

REACTIONS (2)
  - IMMUNODEFICIENCY [None]
  - STAPHYLOCOCCAL SEPSIS [None]
